FAERS Safety Report 13316673 (Version 2)
Quarter: 2017Q2

REPORT INFORMATION
  Report Type: Spontaneous
  Country: US (occurrence: US)
  Receive Date: 20170310
  Receipt Date: 20170620
  Transmission Date: 20170830
  Serious: Yes (Other)
  Sender: FDA-Public Use
  Company Number: US-TEVA-745702ACC

PATIENT
  Age: 36 Year
  Sex: Female
  Weight: 94.43 kg

DRUGS (1)
  1. PARAGARD T 380A [Suspect]
     Active Substance: COPPER
     Indication: CONTRACEPTION
     Dates: start: 20170103, end: 20170228

REACTIONS (4)
  - Vaginal haemorrhage [Not Recovered/Not Resolved]
  - Device expulsion [Unknown]
  - Abdominal pain [Unknown]
  - Device dislocation [Recovered/Resolved]

NARRATIVE: CASE EVENT DATE: 20170207
